FAERS Safety Report 10148738 (Version 1)
Quarter: 2014Q2

REPORT INFORMATION
  Report Type: Spontaneous
  Country: TR (occurrence: TR)
  Receive Date: 20140502
  Receipt Date: 20140502
  Transmission Date: 20141212
  Serious: Yes (Hospitalization, Other)
  Sender: FDA-Public Use
  Company Number: TR-ELI_LILLY_AND_COMPANY-TR201404009963

PATIENT
  Age: 48 Year
  Sex: Female

DRUGS (4)
  1. FLUOXETINE HYDROCHLORIDE [Suspect]
     Indication: MAJOR DEPRESSION
     Dosage: 20 MG, QD
     Route: 065
  2. FLUOXETINE HYDROCHLORIDE [Suspect]
     Dosage: 40 MG, QD
     Route: 065
     Dates: start: 20110118
  3. FLUOXETINE HYDROCHLORIDE [Suspect]
     Dosage: 20 MG, QD
     Route: 065
  4. FLUOXETINE HYDROCHLORIDE [Suspect]
     Dosage: 40 MG, QD
     Route: 065

REACTIONS (6)
  - Hypertension [Recovered/Resolved]
  - Hypertension [Recovered/Resolved]
  - Anxiety [Unknown]
  - Drug intolerance [Unknown]
  - Pain [Unknown]
  - Anaemia [Unknown]
